FAERS Safety Report 14614314 (Version 1)
Quarter: 2018Q1

REPORT INFORMATION
  Report Type: Spontaneous
  Country: FR (occurrence: FR)
  Receive Date: 20180308
  Receipt Date: 20180308
  Transmission Date: 20180509
  Serious: Yes (Other)
  Sender: FDA-Public Use
  Company Number: FR-MERCK KGAA-2043320

PATIENT
  Age: 66 Year
  Sex: Female

DRUGS (1)
  1. NOVOTHYROX [Suspect]
     Active Substance: LEVOTHYROXINE SODIUM
     Indication: PRODUCT USED FOR UNKNOWN INDICATION
     Route: 065

REACTIONS (17)
  - Pain [Unknown]
  - Insomnia [Unknown]
  - Fatigue [Unknown]
  - Irritability [Unknown]
  - Impatience [Unknown]
  - Social avoidant behaviour [Unknown]
  - Alopecia [Unknown]
  - Blood thyroid stimulating hormone abnormal [Unknown]
  - Muscle spasms [Unknown]
  - Balance disorder [Unknown]
  - Thyroxine free decreased [Unknown]
  - Migraine [Unknown]
  - Mental fatigue [Unknown]
  - Malaise [Unknown]
  - Blood pressure decreased [Unknown]
  - Weight decreased [Unknown]
  - Muscle atrophy [Unknown]
